FAERS Safety Report 5535317-0 (Version None)
Quarter: 2007Q4

REPORT INFORMATION
  Report Type: 
  Country: None (occurrence: None)
  Receive Date: 20071204
  Receipt Date: 20071116
  Transmission Date: 20080405
  Serious: Yes (Other)
  Sender: FDA-Public Use
  Company Number: 239302K07USA

PATIENT
  Age: 57 Year
  Sex: Male
  Weight: 102.0593 kg

DRUGS (6)
  1. REBIF [Suspect]
     Indication: MULTIPLE SCLEROSIS
     Dosage: 44 MCG, 3 IN 1 WEEKS, SUBCUTANEOUS
     Route: 058
     Dates: start: 20050607, end: 20071003
  2. PROVIGIL [Concomitant]
  3. BACLOFEN [Concomitant]
  4. LIPITOR [Concomitant]
  5. ATENOLOL [Concomitant]
  6. FLOMAX (MORNIFLUMATE) [Concomitant]

REACTIONS (2)
  - NEPHROLITHIASIS [None]
  - PULMONARY SARCOIDOSIS [None]
